FAERS Safety Report 4431945-4 (Version None)
Quarter: 2004Q3

REPORT INFORMATION
  Report Type: 
  Country: None (occurrence: None)
  Receive Date: 20040818
  Receipt Date: 20040802
  Transmission Date: 20050211
  Serious: Yes (Other)
  Sender: FDA-Public Use
  Company Number: USA040874351

PATIENT
  Sex: Female
  Weight: 61 kg

DRUGS (6)
  1. EVISTA [Suspect]
     Indication: OSTEOPOROSIS
     Dates: start: 20000101, end: 20040601
  2. FORTEO [Suspect]
     Indication: OSTEOPOROSIS
     Dates: start: 20040601, end: 20040701
  3. DARVOCET-N 100 [Concomitant]
  4. EXTRA STRENGTH TYLENOL [Concomitant]
  5. FUROSEMIDE [Concomitant]
  6. COUMADIN [Concomitant]

REACTIONS (7)
  - DIZZINESS [None]
  - FALL [None]
  - MUSCULOSKELETAL DISORDER [None]
  - PHARMACEUTICAL PRODUCT COMPLAINT [None]
  - SPINAL FRACTURE [None]
  - VASCULAR INSUFFICIENCY [None]
  - VERTIGO [None]
